FAERS Safety Report 7965115-X (Version None)
Quarter: 2011Q4

REPORT INFORMATION
  Report Type: 
  Country: None (occurrence: None)
  Receive Date: 20111205
  Receipt Date: 20111124
  Transmission Date: 20120403
  Serious: Yes (Disabling)
  Sender: FDA-Public Use
  Company Number: GER/UKI/11/0022098

PATIENT
  Age: 38 Year
  Sex: Female
  Weight: 87 kg

DRUGS (2)
  1. FLUOXETINE HYDROCHLORIDE [Suspect]
     Indication: DEPRESSION
     Dosage: 20 MG, ORAL
     Route: 048
     Dates: start: 20110613, end: 20110621
  2. ACYCLOVIR [Concomitant]

REACTIONS (6)
  - MUSCULAR WEAKNESS [None]
  - DISINHIBITION [None]
  - MYOPATHY [None]
  - TREMOR [None]
  - ABASIA [None]
  - IMPAIRED WORK ABILITY [None]
